FAERS Safety Report 16865694 (Version 3)
Quarter: 2019Q4

REPORT INFORMATION
  Report Type: Spontaneous
  Country: US (occurrence: US)
  Receive Date: 20190930
  Receipt Date: 20191218
  Transmission Date: 20200122
  Serious: Yes (Other)
  Sender: FDA-Public Use
  Company Number: US-BRISTOL-MYERS SQUIBB COMPANY-BMS-2019-091362

PATIENT
  Age: 37 Year
  Sex: Male

DRUGS (1)
  1. SPRYCEL [Suspect]
     Active Substance: DASATINIB
     Indication: CHRONIC MYELOID LEUKAEMIA
     Dosage: 100 MILLIGRAM, QD
     Route: 048
     Dates: start: 20190529

REACTIONS (6)
  - Decreased appetite [Unknown]
  - Neuropathy peripheral [Unknown]
  - Insomnia [Unknown]
  - Constipation [Unknown]
  - Spinal pain [Unknown]
  - Headache [Unknown]

NARRATIVE: CASE EVENT DATE: 201909
